FAERS Safety Report 5419002-1 (Version None)
Quarter: 2007Q3

REPORT INFORMATION
  Report Type: 
  Country: None (occurrence: None)
  Receive Date: 20070817
  Receipt Date: 20070807
  Transmission Date: 20080115
  Serious: Yes (Other)
  Sender: FDA-Public Use
  Company Number: JP-PFIZER INC-2007066552

PATIENT
  Age: 48 Year
  Sex: Male

DRUGS (4)
  1. GABAPEN [Suspect]
     Dosage: DAILY DOSE:1200MG
     Route: 048
  2. HYDANTOL [Concomitant]
     Dosage: DAILY DOSE:1800MG
     Route: 048
  3. DIAZEPAM [Concomitant]
     Dosage: DAILY DOSE:12MG
     Route: 048
  4. EPIRENAT [Concomitant]
     Dosage: DAILY DOSE:1200MG
     Route: 048

REACTIONS (2)
  - FALL [None]
  - SOMNOLENCE [None]
